FAERS Safety Report 8619201-1 (Version None)
Quarter: 2012Q3

REPORT INFORMATION
  Report Type: 
  Country: None (occurrence: None)
  Receive Date: 20120824
  Receipt Date: 20120813
  Transmission Date: 20120928
  Serious: Yes (Other)
  Sender: FDA-Public Use
  Company Number: US-CELGENE-163-21880-12081666

PATIENT
  Sex: Male

DRUGS (10)
  1. ASPIRIN [Concomitant]
     Dosage: 8 MILLIGRAM
     Route: 065
  2. IPRATROPIUM [Concomitant]
     Route: 065
  3. ASPIRIN [Concomitant]
     Dosage: 162 MILLIGRAM
     Route: 065
  4. REVLIMID [Suspect]
     Indication: MULTIPLE MYELOMA
     Dosage: 25 MILLIGRAM
     Route: 048
     Dates: start: 20110701, end: 20110101
  5. REVLIMID [Suspect]
     Dosage: 15 MILLIGRAM
     Route: 048
     Dates: start: 20120801
  6. VALACYCLOVIR HYDROCHLORIDE [Concomitant]
     Route: 065
  7. AZELASTINE [Concomitant]
     Route: 065
  8. VELCADE [Concomitant]
     Route: 065
  9. REVLIMID [Suspect]
     Dosage: 25 MILLIGRAM
     Route: 048
     Dates: start: 20120608
  10. DEXAMETHASONE [Concomitant]
     Route: 065

REACTIONS (1)
  - CONTUSION [None]
